FAERS Safety Report 13131306 (Version 1)
Quarter: 2017Q1

REPORT INFORMATION
  Report Type: Spontaneous
  Country: DE (occurrence: DE)
  Receive Date: 20170119
  Receipt Date: 20170119
  Transmission Date: 20170428
  Serious: Yes (Other)
  Sender: FDA-Public Use
  Company Number: PHHY2017DE005497

PATIENT
  Sex: Female

DRUGS (1)
  1. ZOMETA [Suspect]
     Active Substance: ZOLEDRONIC ACID
     Indication: BREAST CANCER
     Dosage: 4 MG, UNK
     Route: 065
     Dates: start: 20160906

REACTIONS (13)
  - Breast cancer [Unknown]
  - General physical health deterioration [Unknown]
  - Metastases to liver [Unknown]
  - Musculoskeletal pain [Unknown]
  - Drug tolerance decreased [Unknown]
  - Pathological fracture [Not Recovered/Not Resolved]
  - Malignant neoplasm progression [Unknown]
  - Leukopenia [Unknown]
  - Ilium fracture [Unknown]
  - Microcytic anaemia [Unknown]
  - Humerus fracture [Not Recovered/Not Resolved]
  - Soft tissue neoplasm [Unknown]
  - Spinal pain [Unknown]

NARRATIVE: CASE EVENT DATE: 20161019
